FAERS Safety Report 9822436 (Version 2)
Quarter: 2014Q2

REPORT INFORMATION
  Report Type: Spontaneous
  Country: US (occurrence: US)
  Receive Date: 20140116
  Receipt Date: 20140402
  Transmission Date: 20141212
  Serious: No
  Sender: FDA-Public Use
  Company Number: US-009507513-1401USA006776

PATIENT
  Sex: Female
  Weight: 71.66 kg

DRUGS (1)
  1. IMPLANON [Suspect]
     Dosage: UNK
     Route: 059
     Dates: end: 20131226

REACTIONS (2)
  - Device deployment issue [Recovered/Resolved]
  - No adverse event [Unknown]
